FAERS Safety Report 11743070 (Version 6)
Quarter: 2016Q3

REPORT INFORMATION
  Report Type: Spontaneous
  Country: US (occurrence: US)
  Receive Date: 20151116
  Receipt Date: 20160829
  Transmission Date: 20161109
  Serious: Yes (Hospitalization)
  Sender: FDA-Public Use
  Company Number: US-ACTELION PHARMACEUTICALS US, INC.-A-US2015-113393

PATIENT
  Age: 75 Year
  Sex: Female

DRUGS (4)
  1. COUMADIN [Concomitant]
     Active Substance: WARFARIN SODIUM
  2. PROCARDIA [Concomitant]
     Active Substance: NIFEDIPINE
  3. TRACLEER [Suspect]
     Active Substance: BOSENTAN
     Indication: PULMONARY ARTERIAL HYPERTENSION
     Dosage: 125 MG, BID
     Route: 048
     Dates: start: 20060207
  4. REMODULIN [Concomitant]
     Active Substance: TREPROSTINIL
     Dosage: 93 NG/KG, PER MIN

REACTIONS (13)
  - Diarrhoea [Unknown]
  - Lethargy [Unknown]
  - Dyspnoea [Unknown]
  - Urinary tract infection [Unknown]
  - Flushing [Unknown]
  - Nausea [Unknown]
  - Abdominal discomfort [Unknown]
  - Decreased appetite [Unknown]
  - Blood creatinine increased [Unknown]
  - Pyrexia [Unknown]
  - Fall [Unknown]
  - Pneumonia [Unknown]
  - Dizziness [Unknown]
